FAERS Safety Report 17582649 (Version 1)
Quarter: 2020Q1

REPORT INFORMATION
  Report Type: Report from Study
  Country: None (occurrence: US)
  Receive Date: 20200325
  Receipt Date: 20200325
  Transmission Date: 20200409
  Serious: Yes (Hospitalization)
  Sender: FDA-Public Use
  Company Number: US-ABBVIE-20K-163-3333005-00

PATIENT
  Sex: Male

DRUGS (8)
  1. RITUXAN [Suspect]
     Active Substance: RITUXIMAB
     Indication: LYMPHOCYTIC LEUKAEMIA
     Dosage: VIAL INFUSE 1070MG INTRAVENOUSLY EVERY 28 DAY(S) FOR CYCLES 2-6
     Route: 042
  2. VENCLEXTA [Suspect]
     Active Substance: VENETOCLAX
     Indication: ATRIAL FLUTTER
     Dosage: FOR 1 WEEK
     Route: 048
  3. RITUXAN [Suspect]
     Active Substance: RITUXIMAB
     Indication: ATRIAL FLUTTER
  4. VENCLEXTA [Suspect]
     Active Substance: VENETOCLAX
     Indication: ATRIAL FIBRILLATION
     Dosage: FOR 1 WEEK
     Route: 048
  5. VENCLEXTA [Suspect]
     Active Substance: VENETOCLAX
     Indication: LYMPHOCYTIC LEUKAEMIA
     Dosage: FOR 2 WEEKS
     Route: 048
  6. VENCLEXTA [Suspect]
     Active Substance: VENETOCLAX
     Route: 048
  7. VENCLEXTA [Suspect]
     Active Substance: VENETOCLAX
     Dosage: FOR 1 WEEK
     Route: 048
  8. RITUXAN [Suspect]
     Active Substance: RITUXIMAB
     Indication: ATRIAL FIBRILLATION

REACTIONS (2)
  - Atrial fibrillation [Unknown]
  - Sinusitis [Unknown]
